FAERS Safety Report 10668586 (Version 2)
Quarter: 2015Q1

REPORT INFORMATION
  Report Type: Report from Study
  Country: JP (occurrence: JP)
  Receive Date: 20141222
  Receipt Date: 20150127
  Transmission Date: 20150720
  Serious: Yes (Death, Life-Threatening, Hospitalization)
  Sender: FDA-Public Use
  Company Number: JP-SA-2014SA174977

PATIENT
  Sex: Female

DRUGS (6)
  1. THYMOGLOBULINE [Concomitant]
     Active Substance: LAPINE T-LYMPHOCYTE IMMUNE GLOBULIN
     Indication: ACUTE LYMPHOCYTIC LEUKAEMIA RECURRENT
     Dosage: 80 MG/BODY
     Route: 042
     Dates: start: 20140528, end: 20140528
  2. ALKERAN [Suspect]
     Active Substance: MELPHALAN
     Indication: ACUTE LYMPHOCYTIC LEUKAEMIA RECURRENT
     Dosage: 100 MG/BODY/DAY
     Route: 042
     Dates: start: 20140529, end: 20140530
  3. CYSTEINE/GLYCYRRHIZIC ACID/AMINOACETIC ACID [Suspect]
     Active Substance: CYSTEINE\GLYCINE\GLYCYRRHIZIN
     Route: 065
  4. GRAN [Concomitant]
     Active Substance: FILGRASTIM
     Indication: ACUTE LYMPHOCYTIC LEUKAEMIA RECURRENT
     Dosage: 300 MCG/BODY
     Route: 042
     Dates: start: 20140609, end: 20140615
  5. FLUDARABINE PHOSPHATE. [Suspect]
     Active Substance: FLUDARABINE PHOSPHATE
     Indication: ACUTE LYMPHOCYTIC LEUKAEMIA RECURRENT
     Dosage: 38 MG/BODY/DAY
     Route: 042
     Dates: start: 20140526, end: 20140530
  6. EVOLTRA [Suspect]
     Active Substance: CLOFARABINE
     Indication: ACUTE LYMPHOCYTIC LEUKAEMIA RECURRENT
     Dosage: 60 MG/BODY/DAY
     Route: 042
     Dates: start: 20140519, end: 20140523

REACTIONS (13)
  - Mouth haemorrhage [Not Recovered/Not Resolved]
  - Multi-organ failure [Fatal]
  - Thrombotic microangiopathy [Not Recovered/Not Resolved]
  - Venoocclusive liver disease [Not Recovered/Not Resolved]
  - Alanine aminotransferase increased [Recovered/Resolved]
  - Blood bilirubin increased [Not Recovered/Not Resolved]
  - Hypokalaemia [Recovered/Resolved]
  - Melaena [Not Recovered/Not Resolved]
  - Aspartate aminotransferase increased [Recovered/Resolved]
  - Diarrhoea [Not Recovered/Not Resolved]
  - Acute kidney injury [Not Recovered/Not Resolved]
  - Stem cell transplant [None]
  - Graft versus host disease [None]

NARRATIVE: CASE EVENT DATE: 20140530
